FAERS Safety Report 4381711-3 (Version None)
Quarter: 2004Q2

REPORT INFORMATION
  Report Type: 
  Country: None (occurrence: None)
  Receive Date: 20040603
  Receipt Date: 20030717
  Transmission Date: 20050107
  Serious: Yes (Hospitalization)
  Sender: FDA-Public Use
  Company Number: 200316556US

PATIENT
  Age: 56 Year
  Sex: Female
  Weight: 68.2 kg

DRUGS (1)
  1. ENOXAPARIN SODIUM [Suspect]
     Dosage: 6O MG
     Dates: start: 20030711

REACTIONS (1)
  - PULMONARY EMBOLISM [None]
